FAERS Safety Report 8832561 (Version 1)
Quarter: 2012Q4

REPORT INFORMATION
  Report Type: 
  Country: GB (occurrence: GB)
  Receive Date: 20121010
  Receipt Date: 20121010
  Transmission Date: 20130627
  Serious: Yes (Other)
  Sender: FDA-Public Use
  Company Number: GB-MERCK-1210GBR002858

PATIENT
  Age: 69 Year
  Sex: Male
  Weight: 97 kg

DRUGS (3)
  1. ZOCOR [Suspect]
     Indication: DIABETES MELLITUS
     Dosage: 40 mg, UNK
     Route: 048
     Dates: start: 20060802
  2. ZOCOR [Interacting]
     Indication: BLOOD CHOLESTEROL INCREASED
  3. BLACKBERRY [Interacting]

REACTIONS (2)
  - Back pain [Recovered/Resolved]
  - Food interaction [Recovered/Resolved]
